FAERS Safety Report 10074956 (Version 2)
Quarter: 2015Q4

REPORT INFORMATION
  Report Type: Spontaneous
  Country: US (occurrence: US)
  Receive Date: 20140414
  Receipt Date: 20151012
  Transmission Date: 20160304
  Serious: No
  Sender: FDA-Public Use
  Company Number: US-BIOGENIDEC-2014BI027470

PATIENT
  Age: 57 Year
  Sex: Female

DRUGS (1)
  1. TECFIDERA [Suspect]
     Active Substance: DIMETHYL FUMARATE
     Indication: MULTIPLE SCLEROSIS
     Route: 048
     Dates: start: 20130829

REACTIONS (8)
  - Osteoarthritis [Not Recovered/Not Resolved]
  - Ingrowing nail [Recovered/Resolved]
  - Exostosis [Recovered/Resolved]
  - Onychomycosis [Recovered/Resolved]
  - Erythema [Recovered/Resolved]
  - Nail discolouration [Not Recovered/Not Resolved]
  - Foot deformity [Not Recovered/Not Resolved]
  - Gastrointestinal disorder [Recovered/Resolved]

NARRATIVE: CASE EVENT DATE: 20130829
